FAERS Safety Report 8457767-5 (Version None)
Quarter: 2012Q2

REPORT INFORMATION
  Report Type: 
  Country: None (occurrence: None)
  Receive Date: 20120622
  Receipt Date: 20120615
  Transmission Date: 20120825
  Serious: No
  Sender: FDA-Public Use
  Company Number: US-PFIZER INC-2012146153

PATIENT
  Sex: Female
  Weight: 78.458 kg

DRUGS (3)
  1. POTASSIUM PENICILLIN G [Suspect]
     Dosage: UNK
  2. GRANISETRON [Suspect]
     Dosage: UNK
  3. ONDANSETRON HYDROCHLORIDE [Suspect]
     Dosage: UNK

REACTIONS (1)
  - DRUG HYPERSENSITIVITY [None]
